FAERS Safety Report 18529478 (Version 3)
Quarter: 2020Q4

REPORT INFORMATION
  Report Type: Spontaneous
  Country: US (occurrence: US)
  Receive Date: 20201120
  Receipt Date: 20201204
  Transmission Date: 20210114
  Serious: Yes (Other)
  Sender: FDA-Public Use
  Company Number: US-PFIZER INC-2020457313

PATIENT
  Age: 69 Year
  Sex: Male

DRUGS (2)
  1. XANAX [Suspect]
     Active Substance: ALPRAZOLAM
     Indication: ANXIETY
     Dosage: 1 MG, 3X/DAY
     Route: 048
     Dates: start: 2002
  2. SEROQUEL [Concomitant]
     Active Substance: QUETIAPINE FUMARATE
     Dosage: UNK

REACTIONS (6)
  - Drug ineffective [Unknown]
  - Body height decreased [Unknown]
  - Constipation [Not Recovered/Not Resolved]
  - Product taste abnormal [Unknown]
  - Intentional product misuse [Unknown]
  - Ageusia [Unknown]
